FAERS Safety Report 12100987 (Version 1)
Quarter: 2016Q1

REPORT INFORMATION
  Report Type: Report from Study
  Country: US (occurrence: US)
  Receive Date: 20160222
  Receipt Date: 20160222
  Transmission Date: 20160526
  Serious: Yes (Death)
  Sender: FDA-Public Use
  Company Number: US-JAZZ-2016-US-003093

PATIENT
  Age: 48 Year
  Sex: Female

DRUGS (1)
  1. CLOZAPINE ODT [Suspect]
     Active Substance: CLOZAPINE

REACTIONS (1)
  - Death [Fatal]

NARRATIVE: CASE EVENT DATE: 20151227
